FAERS Safety Report 11341707 (Version 1)
Quarter: 2015Q3

REPORT INFORMATION
  Report Type: Report from Study
  Country: BR (occurrence: BR)
  Receive Date: 20150805
  Receipt Date: 20150805
  Transmission Date: 20151125
  Serious: Yes (Other)
  Sender: FDA-Public Use
  Company Number: BR-ACTELION-A-CH2015-121833

PATIENT
  Age: 16 Year
  Sex: Female
  Weight: 46 kg

DRUGS (1)
  1. ZAVESCA [Suspect]
     Active Substance: MIGLUSTAT
     Indication: NIEMANN-PICK DISEASE
     Dosage: 300 MG, BID
     Route: 048
     Dates: start: 20111026

REACTIONS (7)
  - Thrombocytopenia [Unknown]
  - Platelet count decreased [Unknown]
  - Condition aggravated [Unknown]
  - Seizure [Unknown]
  - Tremor [Unknown]
  - Diarrhoea [Unknown]
  - Dysphagia [Unknown]

NARRATIVE: CASE EVENT DATE: 2012
